FAERS Safety Report 16837047 (Version 1)
Quarter: 2019Q3

REPORT INFORMATION
  Report Type: Spontaneous
  Country: NO (occurrence: NO)
  Receive Date: 20190923
  Receipt Date: 20190923
  Transmission Date: 20191005
  Serious: No
  Sender: FDA-Public Use
  Company Number: NO-NOVEN PHARMACEUTICALS, INC.-NO2018000624

PATIENT

DRUGS (9)
  1. MAGNESIUM [Concomitant]
     Active Substance: MAGNESIUM
  2. VALLERGAN [Concomitant]
     Active Substance: TRIMEPRAZINE
  3. ESCITALOPRAM [Concomitant]
     Active Substance: ESCITALOPRAM OXALATE
  4. FURIX [Concomitant]
  5. ESTRADIOL/NORETHISTERONE ACETATE [Suspect]
     Active Substance: ESTRADIOL\NORETHINDRONE ACETATE
     Indication: MENOPAUSAL SYMPTOMS
     Dosage: UNK UNK, 2/WK
     Route: 065
     Dates: start: 20180511, end: 20180520
  6. PINEX FORTE [Concomitant]
     Active Substance: ACETAMINOPHEN\CODEINE PHOSPHATE
  7. FENAZON-KOFFEIN [Concomitant]
  8. OMEGA 3 MUUMI D3 VITAMIINI [Concomitant]
  9. ESOMEPRAZOL KRKA [Concomitant]

REACTIONS (10)
  - Vaginal discharge [Recovering/Resolving]
  - Swelling [Not Recovered/Not Resolved]
  - Uterine pain [Recovering/Resolving]
  - Oedema [Not Recovered/Not Resolved]
  - Back pain [Recovering/Resolving]
  - Mucosal disorder [Recovering/Resolving]
  - Genital pain [Recovering/Resolving]
  - Vulvovaginal erythema [Recovering/Resolving]
  - Weight increased [Not Recovered/Not Resolved]
  - Flatulence [Recovering/Resolving]

NARRATIVE: CASE EVENT DATE: 20180512
